FAERS Safety Report 5835475-4 (Version None)
Quarter: 2008Q3

REPORT INFORMATION
  Report Type: 
  Country: None (occurrence: None)
  Receive Date: 20080806
  Receipt Date: 20080731
  Transmission Date: 20090109
  Serious: Yes (Other)
  Sender: FDA-Public Use
  Company Number: CA-JNJCH-2008017943

PATIENT
  Sex: Female

DRUGS (4)
  1. LISTERINE WHITENING DISOLVING STRIPS [Suspect]
     Indication: DENTAL CARE
     Dosage: TEXT:2 X A DAY AS PER INSTRUCTIONS
     Route: 050
     Dates: start: 20080630, end: 20080703
  2. PREVACID [Concomitant]
     Indication: GASTROOESOPHAGEAL REFLUX DISEASE
     Dosage: TEXT:UNSPECIFIED
     Route: 065
  3. ATENOLOL [Concomitant]
     Indication: BLOOD PRESSURE
     Dosage: TEXT:UNSPECIFIED
     Route: 065
  4. ACTONEL [Concomitant]
     Indication: BONE DISORDER
     Dosage: TEXT:35 MG
     Route: 065

REACTIONS (7)
  - APPLICATION SITE BURN [None]
  - GINGIVAL SWELLING [None]
  - LIP SWELLING [None]
  - OEDEMA MOUTH [None]
  - ORAL HERPES [None]
  - ORAL PAIN [None]
  - STOMATITIS [None]
